FAERS Safety Report 4954330-5 (Version None)
Quarter: 2006Q1

REPORT INFORMATION
  Report Type: 
  Country: None (occurrence: None)
  Receive Date: 20060322
  Receipt Date: 20060310
  Transmission Date: 20060701
  Serious: Yes (Other)
  Sender: FDA-Public Use
  Company Number: 2006024967

PATIENT
  Age: 63 Year
  Sex: Female

DRUGS (5)
  1. ATORVASTATIN CALCIUM [Suspect]
     Indication: HYPERCHOLESTEROLAEMIA
     Dosage: 10 MG (20 MG, 1/2 TABLET DAILY), ORAL
     Route: 048
     Dates: start: 20050602, end: 20060214
  2. VITAMIN A (NATURAL) CAP [Concomitant]
  3. ACTIVELLE [Concomitant]
  4. LEVOTHYROXINE SODIUM [Concomitant]
  5. OCUVITE (ASCORBIC ACID, RETINOL, TOCOPHEROL) [Concomitant]

REACTIONS (4)
  - CATARACT NUCLEAR [None]
  - CONDITION AGGRAVATED [None]
  - GAMMA-GLUTAMYLTRANSFERASE INCREASED [None]
  - VISUAL ACUITY REDUCED [None]
